FAERS Safety Report 9144462 (Version 2)
Quarter: 2013Q1

REPORT INFORMATION
  Report Type: Spontaneous
  Country: US (occurrence: US)
  Receive Date: 20130306
  Receipt Date: 20130319
  Transmission Date: 20140127
  Serious: Yes (Other)
  Sender: FDA-Public Use
  Company Number: US-ROCHE-1023991

PATIENT
  Age: 19 Year
  Sex: Male
  Weight: 72.64 kg

DRUGS (2)
  1. ACCUTANE [Suspect]
     Indication: ACNE
     Route: 048
     Dates: start: 200001, end: 20060202
  2. ACCUTANE [Suspect]
     Route: 048
     Dates: start: 20050922

REACTIONS (3)
  - Crohn^s disease [Unknown]
  - Mental disorder [Unknown]
  - Lip dry [Unknown]
